FAERS Safety Report 18480249 (Version 4)
Quarter: 2021Q2

REPORT INFORMATION
  Report Type: Spontaneous
  Country: US (occurrence: US)
  Receive Date: 20201109
  Receipt Date: 20210405
  Transmission Date: 20210717
  Serious: Yes (Other)
  Sender: FDA-Public Use
  Company Number: US-ALXN-A202016282

PATIENT
  Age: 66 Year
  Sex: Female

DRUGS (2)
  1. COVID?19 VACCINE NOS. [Concomitant]
     Active Substance: COVID-19 VACCINE NOS
     Indication: COVID-19 IMMUNISATION
     Dosage: UNK
     Route: 065
  2. STRENSIQ [Suspect]
     Active Substance: ASFOTASE ALFA
     Indication: HYPOPHOSPHATASIA
     Dosage: UNK
     Route: 058
     Dates: start: 20161101

REACTIONS (4)
  - Muscle atrophy [Not Recovered/Not Resolved]
  - Rotator cuff syndrome [Unknown]
  - Hyporeflexia [Not Recovered/Not Resolved]
  - Amyloidosis [Unknown]

NARRATIVE: CASE EVENT DATE: 2020
